FAERS Safety Report 17511523 (Version 2)
Quarter: 2020Q2

REPORT INFORMATION
  Report Type: Spontaneous
  Country: US (occurrence: US)
  Receive Date: 20200307
  Receipt Date: 20200403
  Transmission Date: 20200713
  Serious: No
  Sender: FDA-Public Use
  Company Number: US-B.I. PHARMACEUTICALS,INC./RIDGEFIELD-2020-US-012049

PATIENT
  Age: 63 Year
  Sex: Female

DRUGS (1)
  1. SPIRIVA RESPIMAT [Suspect]
     Active Substance: TIOTROPIUM BROMIDE
     Indication: CHRONIC OBSTRUCTIVE PULMONARY DISEASE
     Dosage: 2 SPRAYS PER DAY
     Route: 065
     Dates: start: 2017

REACTIONS (6)
  - Haemoptysis [Recovered/Resolved]
  - Oral infection [Unknown]
  - Abnormal loss of weight [Unknown]
  - Abdominal discomfort [Unknown]
  - Burning sensation [Unknown]
  - Product quality issue [Unknown]

NARRATIVE: CASE EVENT DATE: 201912
